FAERS Safety Report 16385490 (Version 1)
Quarter: 2019Q2

REPORT INFORMATION
  Report Type: Spontaneous
  Country: FR (occurrence: FR)
  Receive Date: 20190603
  Receipt Date: 20190603
  Transmission Date: 20190711
  Serious: Yes (Other)
  Sender: FDA-Public Use
  Company Number: FR-PFIZER INC-2019230972

PATIENT
  Age: 58 Year
  Sex: Male
  Weight: 77 kg

DRUGS (6)
  1. FOLINORAL [Concomitant]
     Active Substance: LEUCOVORIN CALCIUM
  2. AMLODIPINE [Concomitant]
     Active Substance: AMLODIPINE BESYLATE
  3. CYTARABINE. [Suspect]
     Active Substance: CYTARABINE
     Indication: ACUTE MYELOID LEUKAEMIA
     Dosage: 5750 MG, 1X/DAY
     Route: 042
     Dates: start: 20190408, end: 20190413
  4. NIVESTIM [Concomitant]
     Active Substance: FILGRASTIM
  5. TAVANIC [Suspect]
     Active Substance: LEVOFLOXACIN
     Dosage: 500 MG, UNK
     Route: 048
     Dates: start: 20190414, end: 20190417
  6. NOXAFIL [Suspect]
     Active Substance: POSACONAZOLE
     Dosage: 300 MG, UNK
     Route: 048
     Dates: start: 20190414, end: 20190417

REACTIONS (2)
  - Neoplasm progression [Recovering/Resolving]
  - Hepatocellular injury [Recovering/Resolving]

NARRATIVE: CASE EVENT DATE: 20190408
